FAERS Safety Report 6857458-8 (Version None)
Quarter: 2010Q3

REPORT INFORMATION
  Report Type: 
  Country: None (occurrence: None)
  Receive Date: 20100719
  Receipt Date: 20080123
  Transmission Date: 20110219
  Serious: No
  Sender: FDA-Public Use
  Company Number: US-PFIZER INC-2008009057

PATIENT
  Sex: Male
  Weight: 88.6 kg

DRUGS (1)
  1. CHANTIX [Suspect]
     Indication: SMOKING CESSATION THERAPY
     Dates: start: 20080119

REACTIONS (2)
  - INCORRECT DOSE ADMINISTERED [None]
  - POOR QUALITY SLEEP [None]
